FAERS Safety Report 8266936 (Version 5)
Quarter: 2013Q1

REPORT INFORMATION
  Report Type: Spontaneous
  Country: US (occurrence: US)
  Receive Date: 20111129
  Receipt Date: 20130301
  Transmission Date: 20140127
  Serious: Yes (Other)
  Sender: FDA-Public Use
  Company Number: PHHY2011US30059

PATIENT
  Sex: Male
  Weight: 83.9 kg

DRUGS (19)
  1. GLEEVEC [Suspect]
     Indication: CHRONIC MYELOID LEUKAEMIA
     Dosage: 400 MG, DAILY
     Route: 048
     Dates: start: 20020724
  2. GLEEVEC [Suspect]
     Dosage: 400 MG, QD
     Route: 048
     Dates: start: 2007
  3. GLEEVEC [Suspect]
     Dosage: 400 MG, DAILY
     Route: 048
     Dates: start: 200804
  4. GLEEVEC [Suspect]
     Dosage: 400 MG, DAILY
     Route: 048
     Dates: start: 201103
  5. METOPROLOL [Concomitant]
     Dosage: UNK UKN, UNK
  6. ASPIRIN [Concomitant]
     Dosage: UNK UKN, UNK
  7. FLOVENT [Concomitant]
     Dosage: UNK UKN, UNK
  8. ALLOPURINOL [Concomitant]
     Dosage: UNK UKN, UNK
  9. SIMVASTATIN [Concomitant]
     Dosage: UNK UKN, UNK
  10. TAMSULOSIN HYDROCHLORIDE [Concomitant]
     Dosage: UNK UKN, UNK
  11. THEOPHYLLINE [Concomitant]
     Dosage: UNK UKN, UNK
  12. TRIAMTERENE [Concomitant]
     Dosage: UNK UKN, UNK
  13. CLONIDINE HCL [Concomitant]
     Dosage: UNK UKN, UNK
  14. CELEBREX [Concomitant]
     Dosage: UNK UKN, UNK
  15. LISINOPRIL [Concomitant]
     Dosage: UNK UKN, UNK
  16. CLONIDINE [Concomitant]
     Dosage: UNK UKN, UNK
  17. LIPITOR                                 /NET/ [Concomitant]
     Dosage: UNK UKN, UNK
  18. AMLODIPINE [Concomitant]
     Dosage: UNK UKN, UNK
  19. PREDNISONE [Concomitant]
     Dosage: UNK UKN, UNK

REACTIONS (15)
  - Cerebrovascular accident [Unknown]
  - Haematuria [Unknown]
  - Nasal congestion [Not Recovered/Not Resolved]
  - Eye disorder [Not Recovered/Not Resolved]
  - Local swelling [Not Recovered/Not Resolved]
  - Nasopharyngitis [Not Recovered/Not Resolved]
  - Nausea [Not Recovered/Not Resolved]
  - Muscle spasms [Not Recovered/Not Resolved]
  - Joint swelling [Not Recovered/Not Resolved]
  - Pain [Not Recovered/Not Resolved]
  - Oedema [Not Recovered/Not Resolved]
  - Myalgia [Not Recovered/Not Resolved]
  - Bone pain [Not Recovered/Not Resolved]
  - Pain in extremity [Not Recovered/Not Resolved]
  - Dizziness [Not Recovered/Not Resolved]
